FAERS Safety Report 9767645 (Version 2)
Quarter: 2014Q1

REPORT INFORMATION
  Report Type: Spontaneous
  Country: FR (occurrence: FR)
  Receive Date: 20131217
  Receipt Date: 20140106
  Transmission Date: 20141002
  Serious: Yes (Hospitalization, Other)
  Sender: FDA-Public Use
  Company Number: FR-009507513-1312FRA005147

PATIENT
  Age: 82 Year
  Sex: Female

DRUGS (4)
  1. NOROXINE [Suspect]
     Indication: URINARY TRACT INFECTION
     Dosage: 400 MG, QD
     Route: 048
     Dates: start: 20131008, end: 20131015
  2. TAHOR [Suspect]
     Dosage: 1 DF, QD
     Route: 048
     Dates: end: 20131017
  3. ADENURIC [Suspect]
     Indication: URINARY TRACT INFECTION
     Dosage: UNK
     Dates: end: 20131021
  4. AUGMENTIN [Suspect]
     Indication: URINARY TRACT INFECTION
     Dosage: UNK
     Route: 048
     Dates: start: 20131008, end: 20131015

REACTIONS (1)
  - Rhabdomyolysis [Recovered/Resolved]
